FAERS Safety Report 15654470 (Version 1)
Quarter: 2018Q4

REPORT INFORMATION
  Report Type: Report from Study
  Country: CA (occurrence: CA)
  Receive Date: 20181126
  Receipt Date: 20181126
  Transmission Date: 20190205
  Serious: Yes (Other)
  Sender: FDA-Public Use
  Company Number: CA-ROCHE-2201499

PATIENT
  Age: 54 Year
  Sex: Female

DRUGS (18)
  1. ASPIRIN. [Concomitant]
     Active Substance: ASPIRIN
  2. MSM [Concomitant]
     Active Substance: DIMETHYL SULFONE
  3. PREDNISONE. [Concomitant]
     Active Substance: PREDNISONE
  4. ZOLEDRONIC ACID [Concomitant]
     Active Substance: ZOLEDRONIC ACID
  5. IMOVANE [Concomitant]
     Active Substance: ZOPICLONE
  6. CHONDROITIN [Concomitant]
     Active Substance: CHONDROITIN
  7. ACTEMRA [Suspect]
     Active Substance: TOCILIZUMAB
     Indication: TEMPORAL ARTERITIS
  8. ALENDRONATE [Concomitant]
     Active Substance: ALENDRONATE SODIUM
  9. VENTOLIN [Concomitant]
     Active Substance: ALBUTEROL SULFATE
  10. FLONASE [Concomitant]
     Active Substance: FLUTICASONE PROPIONATE
  11. REPLAX (UNK INGREDIENTS) [Concomitant]
     Route: 065
  12. METHOTREXATE. [Concomitant]
     Active Substance: METHOTREXATE
  13. MARIJUANA [Concomitant]
     Active Substance: CANNABIS SATIVA SUBSP. INDICA TOP
  14. ADVAIR HFA [Concomitant]
     Active Substance: FLUTICASONE PROPIONATE\SALMETEROL XINAFOATE
  15. FOLIC ACID. [Concomitant]
     Active Substance: FOLIC ACID
  16. TRIFLEX (CHONDROITIN SULFATE/GLUCOSAMINE HYDROCHLORIDE/METHYL SULFONYL [Concomitant]
  17. ACTEMRA [Suspect]
     Active Substance: TOCILIZUMAB
     Indication: VASCULITIS
     Route: 058
     Dates: start: 20180904
  18. CLARITIN [Concomitant]
     Active Substance: LORATADINE

REACTIONS (8)
  - Ulcer [Not Recovered/Not Resolved]
  - Blister [Not Recovered/Not Resolved]
  - Eyelid exfoliation [Not Recovered/Not Resolved]
  - Acne [Not Recovered/Not Resolved]
  - Rash [Not Recovered/Not Resolved]
  - Diarrhoea haemorrhagic [Not Recovered/Not Resolved]
  - Anal haemorrhage [Unknown]
  - Skin exfoliation [Not Recovered/Not Resolved]

NARRATIVE: CASE EVENT DATE: 20181015
